FAERS Safety Report 5804889-0 (Version None)
Quarter: 2008Q3

REPORT INFORMATION
  Report Type: 
  Country: None (occurrence: None)
  Receive Date: 20080709
  Receipt Date: 20080707
  Transmission Date: 20090109
  Serious: Yes (Hospitalization)
  Sender: FDA-Public Use
  Company Number: US-AMGEN-US280204

PATIENT
  Sex: Female

DRUGS (14)
  1. EPOGEN [Suspect]
     Indication: DIALYSIS
     Route: 058
     Dates: end: 20080101
  2. ARANESP [Suspect]
     Indication: DIALYSIS
     Dates: start: 20080101, end: 20080418
  3. ASPIRIN [Concomitant]
     Route: 065
  4. LISINOPRIL [Concomitant]
     Route: 065
  5. PRILOSEC [Concomitant]
     Route: 065
  6. DULCOLAX [Concomitant]
     Route: 065
  7. METOPROLOL SUCCINATE [Concomitant]
     Route: 065
  8. POTASSIUM CHLORIDE [Concomitant]
     Route: 065
  9. CALCITRIOL [Concomitant]
     Route: 065
  10. LIPITOR [Concomitant]
     Route: 065
  11. PHOSLO [Concomitant]
     Route: 065
  12. CALCIUM [Concomitant]
     Route: 065
  13. MAGNESIUM [Concomitant]
     Route: 065
  14. CHLOR-TRIMETON [Concomitant]

REACTIONS (10)
  - ANAEMIA [None]
  - CHILLS [None]
  - DIZZINESS [None]
  - HYPOKALAEMIA [None]
  - HYPONATRAEMIA [None]
  - HYPOTENSION [None]
  - PERITONITIS BACTERIAL [None]
  - PLATELET COUNT INCREASED [None]
  - SYSTEMIC INFLAMMATORY RESPONSE SYNDROME [None]
  - TREMOR [None]
